FAERS Safety Report 9167100 (Version 1)
Quarter: 2013Q1

REPORT INFORMATION
  Report Type: Spontaneous
  Country: ZA (occurrence: ZA)
  Receive Date: 20130318
  Receipt Date: 20130318
  Transmission Date: 20140127
  Serious: Yes (Other)
  Sender: FDA-Public Use
  Company Number: ZA-009507513-1303ZAF007739

PATIENT
  Sex: Male

DRUGS (1)
  1. ESMERON [Suspect]
     Indication: MUSCLE RELAXANT THERAPY
     Dosage: UNK
     Route: 042
     Dates: start: 2011

REACTIONS (1)
  - Laryngeal oedema [Recovered/Resolved]
